FAERS Safety Report 16890705 (Version 1)
Quarter: 2019Q4

REPORT INFORMATION
  Report Type: Spontaneous
  Country: US (occurrence: US)
  Receive Date: 20190812
  Receipt Date: 20190812
  Transmission Date: 20200122
  Serious: Yes (Hospitalization)
  Sender: FDA-Public Use
  Company Number: None

PATIENT
  Age: 73 Year
  Sex: Female

DRUGS (4)
  1. MAG OXIDE [Concomitant]
     Active Substance: MAGNESIUM OXIDE
  2. ROUVASTATIN [Concomitant]
     Active Substance: ROSUVASTATIN
  3. METOPROLOL TARTRATE. [Concomitant]
     Active Substance: METOPROLOL TARTRATE
  4. DOFETILIDE. [Suspect]
     Active Substance: DOFETILIDE
     Route: 048
     Dates: start: 20180220

REACTIONS (1)
  - Cyst rupture [None]

NARRATIVE: CASE EVENT DATE: 20190720
